FAERS Safety Report 25300730 (Version 1)
Quarter: 2025Q2

REPORT INFORMATION
  Report Type: Spontaneous
  Country: PT (occurrence: PT)
  Receive Date: 20250512
  Receipt Date: 20250512
  Transmission Date: 20250716
  Serious: Yes (Other)
  Sender: BOEHRINGER INGELHEIM
  Company Number: None

PATIENT
  Age: 84 Year
  Sex: Male
  Weight: 74 kg

DRUGS (2)
  1. JARDIANCE [Suspect]
     Active Substance: EMPAGLIFLOZIN
     Indication: Type 2 diabetes mellitus
     Dates: start: 20220307, end: 20220825
  2. DAPAGLIFLOZIN PROPANEDIOL\METFORMIN HYDROCHLORIDE [Suspect]
     Active Substance: DAPAGLIFLOZIN PROPANEDIOL\METFORMIN HYDROCHLORIDE
     Indication: Type 2 diabetes mellitus
     Dates: start: 20241010, end: 20241202

REACTIONS (1)
  - Genitourinary symptom [Recovered/Resolved]
